FAERS Safety Report 7512553-5 (Version None)
Quarter: 2011Q2

REPORT INFORMATION
  Report Type: 
  Country: None (occurrence: None)
  Receive Date: 20110520
  Receipt Date: 20110511
  Transmission Date: 20111010
  Serious: Yes (Hospitalization, Other)
  Sender: FDA-Public Use
  Company Number: 2010SP014790

PATIENT
  Age: 28 Year
  Sex: Female
  Weight: 63.5036 kg

DRUGS (4)
  1. ZEBETA [Concomitant]
  2. KLONOPIN [Concomitant]
  3. COMPAZINE [Suspect]
     Indication: PRODUCT USED FOR UNKNOWN INDICATION
     Dates: end: 20080311
  4. NUVARING [Suspect]
     Indication: CONTRACEPTION
     Dosage: VAG
     Route: 067
     Dates: start: 20040301, end: 20080201

REACTIONS (8)
  - DEEP VEIN THROMBOSIS [None]
  - THROMBOSIS [None]
  - HEART RATE INCREASED [None]
  - THROMBOPHLEBITIS SUPERFICIAL [None]
  - AORTIC ANEURYSM [None]
  - BLOOD PRESSURE INCREASED [None]
  - COAGULOPATHY [None]
  - PULMONARY EMBOLISM [None]
